FAERS Safety Report 24711069 (Version 1)
Quarter: 2024Q4

REPORT INFORMATION
  Report Type: Spontaneous
  Country: US (occurrence: None)
  Receive Date: 20241206
  Receipt Date: 20241206
  Transmission Date: 20250115
  Serious: Yes (Life-Threatening, Hospitalization, Disabling)
  Sender: Public
  Company Number: None

PATIENT
  Age: 26 Year
  Sex: Female
  Weight: 81.65 kg

DRUGS (4)
  1. DESVENLAFAXINE [Suspect]
     Active Substance: DESVENLAFAXINE
  2. DEXMETHYLPHENIDATE [Suspect]
     Active Substance: DEXMETHYLPHENIDATE
  3. LABETALOL [Suspect]
     Active Substance: LABETALOL
  4. ATENOLOL [Suspect]
     Active Substance: ATENOLOL

REACTIONS (15)
  - Maternal exposure during pregnancy [None]
  - Foetal death [None]
  - Stillbirth [None]
  - Postpartum haemorrhage [None]
  - Hysterectomy [None]
  - Oophorectomy [None]
  - Placenta praevia [None]
  - Sepsis [None]
  - Disseminated intravascular coagulation [None]
  - Limb amputation [None]
  - Ultrasound foetal abnormal [None]
  - Abnormal cord insertion [None]
  - Multiple cardiac defects [None]
  - Aortic disorder [None]
  - Pulmonary artery stenosis congenital [None]

NARRATIVE: CASE EVENT DATE: 20230923
